FAERS Safety Report 18054424 (Version 4)
Quarter: 2020Q4

REPORT INFORMATION
  Report Type: Spontaneous
  Country: US (occurrence: US)
  Receive Date: 20200722
  Receipt Date: 20201225
  Transmission Date: 20210113
  Serious: Yes (Other)
  Sender: FDA-Public Use
  Company Number: US-SHIRE-US202023513

PATIENT
  Age: 21 Year

DRUGS (1)
  1. RECOMBINATE [Suspect]
     Active Substance: ANTIHEMOPHILIC FACTOR, HUMAN RECOMBINANT
     Indication: PRODUCT USED FOR UNKNOWN INDICATION
     Dosage: 6000 INTERNATIONAL UNIT, UNKNOWN
     Route: 042

REACTIONS (8)
  - Ligament sprain [Recovered/Resolved]
  - Musculoskeletal stiffness [Unknown]
  - Limb discomfort [Recovered/Resolved]
  - Haemarthrosis [Unknown]
  - Muscle haemorrhage [Unknown]
  - Peripheral swelling [Recovered/Resolved]
  - Neck pain [Recovered/Resolved]
  - Pain [Unknown]

NARRATIVE: CASE EVENT DATE: 20200517
